FAERS Safety Report 6477895-3 (Version None)
Quarter: 2009Q4

REPORT INFORMATION
  Report Type: 
  Country: None (occurrence: None)
  Receive Date: 20091207
  Receipt Date: 20091125
  Transmission Date: 20100525
  Serious: Yes (Disabling)
  Sender: FDA-Public Use
  Company Number: GB-CELGENEUS-167-C5013-09112054

PATIENT
  Sex: Female

DRUGS (14)
  1. CC-5013 [Suspect]
     Indication: MULTIPLE MYELOMA
     Route: 048
     Dates: start: 20091110, end: 20091124
  2. DEXAMETHASONE TAB [Suspect]
     Indication: MULTIPLE MYELOMA
     Route: 065
     Dates: start: 20091110, end: 20091124
  3. LANSOPRAZOLE [Concomitant]
     Indication: PROPHYLAXIS
     Route: 048
  4. METOCLOPRAMIDE [Concomitant]
     Indication: ANTIEMETIC SUPPORTIVE CARE
     Route: 048
  5. AMLODIPINE [Concomitant]
     Route: 048
  6. SIMVASTATIN [Concomitant]
     Indication: PROPHYLAXIS
     Route: 048
  7. AMOXICILLIN [Concomitant]
     Indication: PROPHYLAXIS
     Route: 048
  8. CO-CODAMOL [Concomitant]
     Indication: PAIN
     Dosage: 8/500 QDS
     Route: 048
  9. CALCIUM ERGOCALCIFEROL [Concomitant]
     Indication: VITAMIN D DEFICIENCY
     Route: 048
  10. ALBUTEROL [Concomitant]
     Route: 055
  11. ACYCLOVIR [Concomitant]
     Indication: ANTIVIRAL PROPHYLAXIS
     Route: 048
     Dates: start: 20091110
  12. ALLOPURINOL [Concomitant]
     Indication: PROPHYLAXIS
     Route: 048
     Dates: start: 20091110
  13. ASPIRIN [Concomitant]
     Indication: DEEP VEIN THROMBOSIS
     Route: 048
     Dates: start: 20091110
  14. CO-TRIMOXAZOLE [Concomitant]
     Indication: ANTIFUNGAL PROPHYLAXIS
     Route: 048
     Dates: start: 20091110

REACTIONS (1)
  - HYPONATRAEMIA [None]
